FAERS Safety Report 4319902-X (Version None)
Quarter: 2004Q1

REPORT INFORMATION
  Report Type: 
  Country: None (occurrence: None)
  Receive Date: 20040319
  Receipt Date: 20040310
  Transmission Date: 20041129
  Serious: Yes (Hospitalization, Other)
  Sender: FDA-Public Use
  Company Number: PHNU2004DE01068

PATIENT
  Sex: Female

DRUGS (7)
  1. CLOZARIL [Suspect]
     Indication: SCHIZOPHRENIA
     Dosage: 50 MG/DAY
     Route: 048
     Dates: end: 20031101
  2. CLOZARIL [Suspect]
     Dosage: 400 MG/DAY
     Route: 048
  3. LAMOTRIGINE [Suspect]
     Dosage: 100 MG/DAY
     Route: 048
  4. CIPRAMIL [Concomitant]
     Dosage: 20 MG/DAY
     Route: 048
  5. APONAL [Concomitant]
     Dosage: 50 MG/DAY
     Route: 048
  6. LORAZEPAM [Concomitant]
     Dosage: 2 MG/DAY
     Route: 048
  7. ALPHA LIPOIC ACID [Concomitant]

REACTIONS (7)
  - C-REACTIVE PROTEIN INCREASED [None]
  - DRUG INTERACTION [None]
  - DRUG LEVEL INCREASED [None]
  - GENERAL PHYSICAL CONDITION ABNORMAL [None]
  - PYREXIA [None]
  - RESPIRATORY FAILURE [None]
  - UROSEPSIS [None]
